FAERS Safety Report 4353219-2 (Version None)
Quarter: 2004Q2

REPORT INFORMATION
  Report Type: 
  Country: None (occurrence: None)
  Receive Date: 20040505
  Receipt Date: 20020604
  Transmission Date: 20050107
  Serious: Yes (Hospitalization)
  Sender: FDA-Public Use
  Company Number: PHBS2002JP06682

PATIENT
  Age: 56 Year
  Sex: Male
  Weight: 52 kg

DRUGS (12)
  1. GLEEVEC [Suspect]
     Indication: CHRONIC MYELOID LEUKAEMIA
     Dosage: 200 MG/D
     Route: 048
     Dates: start: 20020307, end: 20020313
  2. GLEEVEC [Suspect]
     Dosage: 400 MG/D
     Route: 048
     Dates: start: 20020314, end: 20020328
  3. GLEEVEC [Suspect]
     Dosage: 400 MG/D
     Route: 048
     Dates: start: 20020502, end: 20020525
  4. GLEEVEC [Suspect]
     Dosage: 200 MG/D
     Route: 048
     Dates: start: 20020219, end: 20020224
  5. GLEEVEC [Suspect]
     Dosage: 400 MG/D
     Route: 048
     Dates: start: 20020225, end: 20020306
  6. URONASE [Concomitant]
     Indication: PHLEBOTHROMBOSIS
     Dates: start: 20020510, end: 20020515
  7. CEFAZOLIN [Concomitant]
     Dates: start: 20020512, end: 20020515
  8. ALLOZYM [Concomitant]
     Dates: start: 19920101
  9. MEDEPOLIN [Concomitant]
     Dates: start: 19920101
  10. PURSENNID [Concomitant]
     Dates: start: 20020515
  11. SENEVACUL [Concomitant]
     Dates: start: 19920101
  12. CALCIUM CARBONATE [Concomitant]
     Dates: start: 19920101

REACTIONS (11)
  - ASPARTATE AMINOTRANSFERASE INCREASED [None]
  - BLOOD ALKALINE PHOSPHATASE INCREASED [None]
  - BLOOD LACTATE DEHYDROGENASE INCREASED [None]
  - DERMATITIS EXFOLIATIVE [None]
  - DRUG ERUPTION [None]
  - GAMMA-GLUTAMYLTRANSFERASE INCREASED [None]
  - LIVER DISORDER [None]
  - PALPITATIONS [None]
  - PRURITUS GENERALISED [None]
  - PYREXIA [None]
  - SUBCLAVIAN VEIN THROMBOSIS [None]
